FAERS Safety Report 22657933 (Version 1)
Quarter: 2023Q2

REPORT INFORMATION
  Report Type: Spontaneous
  Country: TH (occurrence: TH)
  Receive Date: 20230630
  Receipt Date: 20230630
  Transmission Date: 20230722
  Serious: Yes (Hospitalization)
  Sender: FDA-Public Use
  Company Number: TH-002147023-NVSC2023TH145552

PATIENT
  Age: 40 Year
  Sex: Male

DRUGS (1)
  1. SECUKINUMAB [Suspect]
     Active Substance: SECUKINUMAB
     Indication: Product used for unknown indication
     Dosage: 300 MG
     Route: 065

REACTIONS (3)
  - Eosinophil count increased [Unknown]
  - Peripheral swelling [Unknown]
  - Skin irritation [Unknown]
